FAERS Safety Report 8202742-9 (Version None)
Quarter: 2012Q1

REPORT INFORMATION
  Report Type: 
  Country: None (occurrence: None)
  Receive Date: 20120312
  Receipt Date: 20120307
  Transmission Date: 20120608
  Serious: Yes (Death)
  Sender: FDA-Public Use
  Company Number: US-BAXTER-2012BH006831

PATIENT

DRUGS (1)
  1. HEPARIN SODIUM 1,000 UNITS AND SODIUM CHLORIDE 0.9% [Suspect]
     Indication: EMBOLISM VENOUS
     Route: 042

REACTIONS (2)
  - RETROPERITONEAL HAEMORRHAGE [None]
  - RENAL FAILURE ACUTE [None]
